FAERS Safety Report 8390630-7 (Version None)
Quarter: 2012Q2

REPORT INFORMATION
  Report Type: 
  Country: None (occurrence: None)
  Receive Date: 20120529
  Receipt Date: 20120518
  Transmission Date: 20120825
  Serious: Yes (Other)
  Sender: FDA-Public Use
  Company Number: CA-JNJFOC-20120515382

PATIENT
  Sex: Male
  Weight: 58 kg

DRUGS (2)
  1. REMICADE [Suspect]
     Indication: ANKYLOSING SPONDYLITIS
     Dosage: 52 WEEKS
     Route: 042
     Dates: start: 20060101
  2. REMICADE [Suspect]
     Route: 042

REACTIONS (2)
  - BACK INJURY [None]
  - FALL [None]
